FAERS Safety Report 4830774-7 (Version None)
Quarter: 2005Q4

REPORT INFORMATION
  Report Type: 
  Country: None (occurrence: None)
  Receive Date: 20051114
  Receipt Date: 20051103
  Transmission Date: 20060501
  Serious: Yes (Hospitalization)
  Sender: FDA-Public Use
  Company Number: GXKR2005HR01915

PATIENT
  Age: 93 Year
  Sex: Female

DRUGS (4)
  1. AMINOPHYLLIN INJ [Suspect]
     Indication: CHRONIC OBSTRUCTIVE PULMONARY DISEASE
     Dosage: 250 MG/10 ML, INTRAVENOUS
     Route: 042
     Dates: start: 20050919, end: 20050919
  2. TEOLIN (THEOPHYLLINE) [Concomitant]
  3. SEREVENT [Concomitant]
  4. VENTOLIN [Concomitant]

REACTIONS (7)
  - BLOOD CREATINE PHOSPHOKINASE MB INCREASED [None]
  - FEELING ABNORMAL [None]
  - HYPERHIDROSIS [None]
  - PALLOR [None]
  - PO2 DECREASED [None]
  - VOMITING [None]
  - WHITE BLOOD CELL COUNT DECREASED [None]
